FAERS Safety Report 7307171-8 (Version None)
Quarter: 2011Q1

REPORT INFORMATION
  Report Type: 
  Country: None (occurrence: None)
  Receive Date: 20110119
  Receipt Date: 20100520
  Transmission Date: 20110831
  Serious: Yes (Other)
  Sender: FDA-Public Use
  Company Number: A-NJ2010-35595

PATIENT
  Age: 83 Year
  Sex: Female
  Weight: 81.6 kg

DRUGS (7)
  1. TRACLEER [Suspect]
     Indication: PULMONARY ARTERIAL HYPERTENSION
     Dosage: 125 MG, BID, ORAL, 62.5 MG, BID, ORAL, 62.5 MG, BID, ORAL
     Route: 048
     Dates: start: 20100101, end: 20100330
  2. TRACLEER [Suspect]
     Indication: PULMONARY ARTERIAL HYPERTENSION
     Dosage: 125 MG, BID, ORAL, 62.5 MG, BID, ORAL, 62.5 MG, BID, ORAL
     Route: 048
     Dates: start: 20091118, end: 20100101
  3. TRACLEER [Suspect]
     Indication: PULMONARY ARTERIAL HYPERTENSION
     Dosage: 125 MG, BID, ORAL, 62.5 MG, BID, ORAL, 62.5 MG, BID, ORAL
     Route: 048
     Dates: start: 20091014, end: 20091117
  4. IMDUR [Concomitant]
  5. NORVASC [Concomitant]
  6. LIPITOR [Concomitant]
  7. DIAVAN (ASCORBIC ACID, CHROMIUM, SELENIUM, VANADYL SULFATE) [Concomitant]

REACTIONS (2)
  - LIVER FUNCTION TEST ABNORMAL [None]
  - HEPATITIS [None]
